FAERS Safety Report 17942218 (Version 2)
Quarter: 2020Q4

REPORT INFORMATION
  Report Type: Report from Study
  Country: US (occurrence: US)
  Receive Date: 20200625
  Receipt Date: 20201229
  Transmission Date: 20210113
  Serious: No
  Sender: FDA-Public Use
  Company Number: US-SA-2020SA162772

PATIENT

DRUGS (2)
  1. BUDESONIDE. [Concomitant]
     Active Substance: BUDESONIDE
     Indication: NASAL POLYPS
     Dosage: UNK
  2. DUPILUMAB [Suspect]
     Active Substance: DUPILUMAB
     Indication: NASAL POLYPS
     Dosage: UNK

REACTIONS (5)
  - Nasal congestion [Unknown]
  - Sinus operation [Unknown]
  - Upper-airway cough syndrome [Unknown]
  - Anosmia [Unknown]
  - Rhinorrhoea [Unknown]
